FAERS Safety Report 9801329 (Version 1)
Quarter: 2014Q1

REPORT INFORMATION
  Report Type: Spontaneous
  Country: US (occurrence: US)
  Receive Date: 20140107
  Receipt Date: 20140107
  Transmission Date: 20141002
  Serious: No
  Sender: FDA-Public Use
  Company Number: US-GLAXOSMITHKLINE-A1046114A

PATIENT
  Age: 60 Year
  Sex: Female

DRUGS (10)
  1. BENLYSTA [Suspect]
     Indication: SYSTEMIC LUPUS ERYTHEMATOSUS
     Route: 042
     Dates: start: 20130910
  2. PLAQUENIL [Concomitant]
  3. PREDNISONE [Concomitant]
  4. IMURAN [Concomitant]
  5. HYDROCODONE [Concomitant]
  6. LYRICA [Concomitant]
  7. ZETIA [Concomitant]
  8. CYMBALTA [Concomitant]
  9. SYNTHROID [Concomitant]
  10. ACTONEL [Concomitant]

REACTIONS (12)
  - Pain [Recovered/Resolved]
  - Fatigue [Unknown]
  - Vomiting [Unknown]
  - Eye swelling [Unknown]
  - Face oedema [Unknown]
  - Pruritus [Unknown]
  - Ocular hyperaemia [Unknown]
  - Eye discharge [Unknown]
  - Eye swelling [Unknown]
  - Rash macular [Unknown]
  - Erythema [Unknown]
  - Therapeutic response unexpected [Unknown]
